FAERS Safety Report 6112482-8 (Version None)
Quarter: 2009Q1

REPORT INFORMATION
  Report Type: 
  Country: None (occurrence: None)
  Receive Date: 20090312
  Receipt Date: 20090310
  Transmission Date: 20090719
  Serious: Yes (Life-Threatening, Hospitalization)
  Sender: FDA-Public Use
  Company Number: FR-JNJFOC-20090302027

PATIENT
  Age: 48 Year
  Sex: Male

DRUGS (4)
  1. RISPERDAL [Suspect]
     Indication: SCHIZOPHRENIA
     Route: 048
  2. TERCIAN [Suspect]
     Indication: SCHIZOPHRENIA
     Route: 048
  3. ANDROTARDYL [Suspect]
     Indication: KLINEFELTER'S SYNDROME
     Route: 030
  4. PANTESTONE [Concomitant]
     Indication: KLINEFELTER'S SYNDROME
     Route: 048

REACTIONS (2)
  - HOSPITALISATION [None]
  - PULMONARY EMBOLISM [None]
